FAERS Safety Report 9901313 (Version 2)
Quarter: 2014Q2

REPORT INFORMATION
  Report Type: Spontaneous
  Country: US (occurrence: US)
  Receive Date: 20140217
  Receipt Date: 20140509
  Transmission Date: 20141212
  Serious: Yes (Other)
  Sender: FDA-Public Use
  Company Number: US-BAYER-2014-024517

PATIENT
  Age: 24 Year
  Sex: Female

DRUGS (2)
  1. MIRENA [Suspect]
     Indication: CONTRACEPTION
     Dosage: 20 MCG/24HR, CONT
     Route: 015
     Dates: start: 20120319, end: 20130415
  2. ATIVAN [Concomitant]

REACTIONS (7)
  - Device failure [None]
  - Embedded device [None]
  - Uterine perforation [None]
  - Device breakage [None]
  - Injury [None]
  - Pain [None]
  - Emotional distress [None]
